FAERS Safety Report 14305473 (Version 1)
Quarter: 2017Q4

REPORT INFORMATION
  Report Type: Report from Study
  Country: JP (occurrence: JP)
  Receive Date: 20171219
  Receipt Date: 20171219
  Transmission Date: 20180321
  Serious: Yes (Other)
  Sender: FDA-Public Use
  Company Number: JP-OTSUKA-03100-JPN-07-0634

PATIENT
  Age: 58 Year
  Sex: Female

DRUGS (18)
  1. EPIRENAT [Concomitant]
     Active Substance: VALPROATE SODIUM
     Route: 048
     Dates: start: 20070728, end: 20070810
  2. RISPERDAL [Concomitant]
     Active Substance: RISPERIDONE
     Route: 048
     Dates: start: 20070825, end: 20070907
  3. RISPERDAL [Concomitant]
     Active Substance: RISPERIDONE
     Route: 048
     Dates: start: 20070929
  4. RISPERDAL [Concomitant]
     Active Substance: RISPERIDONE
     Route: 048
     Dates: start: 20070923, end: 20070928
  5. SOLANAX [Concomitant]
     Active Substance: ALPRAZOLAM
     Route: 048
  6. FLUNITRAZEPAM [Concomitant]
     Active Substance: FLUNITRAZEPAM
     Route: 048
  7. LEVOTOMIN [Concomitant]
     Active Substance: LEVOMEPROMAZINE
     Route: 048
     Dates: start: 20070929
  8. ALPRAZOLAM. [Concomitant]
     Active Substance: ALPRAZOLAM
     Indication: SCHIZOPHRENIA
     Dosage: 1.6 MG, UNK
     Route: 048
  9. ARIPIPRAZOLE. [Suspect]
     Active Substance: ARIPIPRAZOLE
     Dosage: 6 MG, BID
     Route: 048
     Dates: start: 20070929, end: 20071002
  10. ARIPIPRAZOLE. [Suspect]
     Active Substance: ARIPIPRAZOLE
     Dosage: 6 MG, QD
     Route: 048
     Dates: start: 20071003, end: 20071009
  11. EPIRENAT [Concomitant]
     Active Substance: VALPROATE SODIUM
     Route: 048
     Dates: start: 20070811, end: 20070824
  12. SORENTMIN [Concomitant]
     Active Substance: BROTIZOLAM
     Route: 048
  13. ARIPIPRAZOLE. [Suspect]
     Active Substance: ARIPIPRAZOLE
     Dosage: 9 MG, BID
     Route: 048
     Dates: start: 20070804, end: 20070928
  14. NELUROLEN [Concomitant]
     Active Substance: NITRAZEPAM
     Route: 048
  15. FLUNITRAZEPAM [Concomitant]
     Active Substance: FLUNITRAZEPAM
     Indication: SCHIZOPHRENIA
     Dosage: 2 MG, UNK
     Route: 048
  16. EPIRENAT [Concomitant]
     Active Substance: VALPROATE SODIUM
     Route: 048
     Dates: end: 20070727
  17. RISPERDAL [Concomitant]
     Active Substance: RISPERIDONE
     Route: 048
     Dates: end: 20070824
  18. RISPERIDONE. [Concomitant]
     Active Substance: RISPERIDONE
     Indication: SCHIZOPHRENIA
     Dosage: 4MG(UNK-24AUG07),2MG(25AUG-7SEP07),4MG(23SEP-28SEP07),6 MG(29SEP-CONTINUING).
     Route: 048
     Dates: start: 20070923, end: 20070928

REACTIONS (1)
  - Psychiatric symptom [Recovering/Resolving]

NARRATIVE: CASE EVENT DATE: 20070923
